FAERS Safety Report 7335517-3 (Version None)
Quarter: 2011Q1

REPORT INFORMATION
  Report Type: 
  Country: None (occurrence: None)
  Receive Date: 20110307
  Receipt Date: 20110302
  Transmission Date: 20110831
  Serious: Yes (Death, Other)
  Sender: FDA-Public Use
  Company Number: ZA-ASTRAZENECA-2011SE05620

PATIENT
  Age: 65 Year
  Sex: Female

DRUGS (11)
  1. CHLOROQUINE [Suspect]
  2. ESTROFEM [Concomitant]
  3. PREDNISONE [Suspect]
  4. STEROIDS [Concomitant]
  5. METHOTREXATE [Concomitant]
  6. CRESTOR [Suspect]
     Indication: HYPERLIPIDAEMIA
     Route: 048
     Dates: start: 20091027, end: 20110116
  7. DICLOFENAC [Concomitant]
  8. LIPITOR [Concomitant]
     Dates: start: 20050101, end: 20091027
  9. PRAVASTATIN [Concomitant]
     Dates: start: 20050101, end: 20091027
  10. LANSOPRAZOLE [Concomitant]
  11. NSAIDS [Concomitant]

REACTIONS (4)
  - MUSCLE ATROPHY [None]
  - DIVERTICULITIS [None]
  - MUSCULAR WEAKNESS [None]
  - SEPSIS [None]
